FAERS Safety Report 5143436-6 (Version None)
Quarter: 2006Q4

REPORT INFORMATION
  Report Type: 
  Country: None (occurrence: None)
  Receive Date: 20061101
  Receipt Date: 20061101
  Transmission Date: 20070319
  Serious: Yes (Disabling)
  Sender: FDA-Public Use
  Company Number: None

PATIENT
  Sex: Female
  Weight: 68.0396 kg

DRUGS (2)
  1. ZOMETA [Suspect]
     Indication: BREAST CANCER
     Dosage: 4 MG MONTHLY IV
     Route: 042
     Dates: start: 20051115, end: 20060501
  2. ZOMETA [Suspect]
     Indication: METASTASES TO BONE
     Dosage: 4 MG MONTHLY IV
     Route: 042
     Dates: start: 20051115, end: 20060501

REACTIONS (3)
  - ARTHRALGIA [None]
  - OSTEONECROSIS [None]
  - PAIN IN JAW [None]
